FAERS Safety Report 9190355 (Version 1)
Quarter: 2013Q1

REPORT INFORMATION
  Report Type: Spontaneous
  Country: US (occurrence: None)
  Receive Date: 20130325
  Receipt Date: 20130325
  Transmission Date: 20140127
  Serious: Yes (Hospitalization)
  Sender: FDA-Public Use
  Company Number: None

PATIENT
  Age: 65 Year
  Sex: Male

DRUGS (1)
  1. NORTRIPTYLINE [Suspect]
     Indication: CONVULSION
     Dosage: 1 CAPSULE BY MOUTH TWICE A DAY
     Route: 048
     Dates: start: 20120203, end: 20130120

REACTIONS (4)
  - Convulsion [None]
  - Memory impairment [None]
  - Alcohol abuse [None]
  - Disease recurrence [None]
